FAERS Safety Report 12009479 (Version 1)
Quarter: 2016Q1

REPORT INFORMATION
  Report Type: Spontaneous
  Country: US (occurrence: US)
  Receive Date: 20160205
  Receipt Date: 20160205
  Transmission Date: 20160526
  Serious: Yes (Death)
  Sender: FDA-Public Use
  Company Number: US-FRESENIUS KABI-FK201600547

PATIENT
  Age: 68 Year
  Sex: Male

DRUGS (13)
  1. GUAIFENESIN. [Concomitant]
     Active Substance: GUAIFENESIN
  2. METFORMIN [Concomitant]
     Active Substance: METFORMIN HYDROCHLORIDE
  3. RANITIDINE [Concomitant]
     Active Substance: RANITIDINE\RANITIDINE HYDROCHLORIDE
  4. GEMCITABINE [Suspect]
     Active Substance: GEMCITABINE\GEMCITABINE HYDROCHLORIDE
     Indication: SQUAMOUS CELL CARCINOMA
     Route: 042
  5. TIOTROPIUM [Concomitant]
     Active Substance: TIOTROPIUM
  6. CISPLATIN (MANUFACTURER UNKNOWN) [Suspect]
     Active Substance: CISPLATIN
     Indication: SQUAMOUS CELL CARCINOMA
     Route: 042
  7. PREDNISONE. [Concomitant]
     Active Substance: PREDNISONE
  8. ASPIRIN. [Concomitant]
     Active Substance: ASPIRIN
  9. FLUTICASONE W/SALMETEROL [Concomitant]
     Active Substance: FLUTICASONE PROPIONATE\SALMETEROL XINAFOATE
  10. GLIPIZIDE. [Concomitant]
     Active Substance: GLIPIZIDE
  11. ANTIEMETICS [Concomitant]
     Active Substance: UNSPECIFIED INGREDIENT
  12. FUROSEMIDE. [Concomitant]
     Active Substance: FUROSEMIDE
  13. NAPROXEN. [Concomitant]
     Active Substance: NAPROXEN

REACTIONS (1)
  - Tumour lysis syndrome [Fatal]
